FAERS Safety Report 18576389 (Version 1)
Quarter: 2020Q4

REPORT INFORMATION
  Report Type: Spontaneous
  Country: US (occurrence: US)
  Receive Date: 20201203
  Receipt Date: 20201203
  Transmission Date: 20210114
  Serious: No
  Sender: FDA-Public Use
  Company Number: US-PFIZER INC-2020475599

PATIENT
  Age: 60 Year
  Sex: Female
  Weight: 125.64 kg

DRUGS (2)
  1. BENZONATATE. [Suspect]
     Active Substance: BENZONATATE
     Indication: COUGH
  2. BENZONATATE. [Suspect]
     Active Substance: BENZONATATE
     Indication: COVID-19
     Dosage: 100 MG, AS NEEDED (100MG CAPSULES THREE TIMES DAILY AS NEEDED)
     Route: 048

REACTIONS (1)
  - Drug ineffective [Unknown]
